FAERS Safety Report 8856496 (Version 2)
Quarter: 2013Q1

REPORT INFORMATION
  Report Type: Spontaneous
  Country: DE (occurrence: None)
  Receive Date: 20121018
  Receipt Date: 20121106
  Transmission Date: 20140127
  Serious: Yes (Life-Threatening, Hospitalization, Other)
  Sender: FDA-Public Use
  Company Number: DSM-2012-01119

PATIENT
  Age: 45 Year
  Sex: Female
  Weight: 98 kg

DRUGS (2)
  1. OLMETEC (OLMESARTAN MEDOXOMIL) [Suspect]
     Indication: HYPERTENSION
     Route: 048
     Dates: start: 20120730, end: 20120920
  2. BETABLOCKER NOS (BETA BLOCKING AGENTS) [Concomitant]

REACTIONS (7)
  - Hepatotoxicity [None]
  - Pruritus [None]
  - Hypertension [None]
  - Aspartate aminotransferase increased [None]
  - Alanine aminotransferase increased [None]
  - Gamma-glutamyltransferase increased [None]
  - Nausea [None]
